FAERS Safety Report 4794989-9 (Version None)
Quarter: 2005Q4

REPORT INFORMATION
  Report Type: 
  Country: None (occurrence: None)
  Receive Date: 20051006
  Receipt Date: 20050921
  Transmission Date: 20060501
  Serious: Yes (Other)
  Sender: FDA-Public Use
  Company Number: 2005US001372

PATIENT
  Age: 23 Year
  Sex: Female

DRUGS (3)
  1. AMBISOME [Suspect]
     Indication: CANDIDURIA
     Dosage: 4.00 MG/KG, UID/QD, IV NOS
     Route: 042
  2. CEFTRIAXONE [Concomitant]
  3. LEVOFLOXACIN [Concomitant]

REACTIONS (10)
  - BONE MARROW TOXICITY [None]
  - CONGESTIVE CARDIOMYOPATHY [None]
  - DRUG TOXICITY [None]
  - ELECTROCARDIOGRAM ST-T CHANGE [None]
  - HEART RATE INCREASED [None]
  - HYPOTENSION [None]
  - MYOCARDITIS [None]
  - PANCYTOPENIA [None]
  - PULMONARY OEDEMA [None]
  - RESPIRATORY RATE INCREASED [None]
